FAERS Safety Report 5238395-1 (Version None)
Quarter: 2007Q1

REPORT INFORMATION
  Report Type: 
  Country: None (occurrence: None)
  Receive Date: 20070215
  Receipt Date: 20070119
  Transmission Date: 20070707
  Serious: Yes (Other)
  Sender: FDA-Public Use
  Company Number: US-ROCHE-477741

PATIENT
  Age: 65 Year
  Sex: Male

DRUGS (4)
  1. CAPECITABINE [Suspect]
     Route: 065
     Dates: start: 20061116
  2. AVASTIN [Suspect]
     Route: 065
     Dates: start: 20061116
  3. OXALIPLATIN [Suspect]
     Route: 065
     Dates: start: 20061116
  4. ZOCOR [Suspect]
     Indication: DRUG USE FOR UNKNOWN INDICATION
     Route: 065
     Dates: start: 20020615

REACTIONS (2)
  - HEPATITIS [None]
  - RHABDOMYOLYSIS [None]
